FAERS Safety Report 6803987-2 (Version None)
Quarter: 2010Q2

REPORT INFORMATION
  Report Type: 
  Country: None (occurrence: None)
  Receive Date: 20100628
  Receipt Date: 20060518
  Transmission Date: 20101027
  Serious: No
  Sender: FDA-Public Use
  Company Number: US-PFIZER INC-2006067880

PATIENT
  Sex: Female
  Weight: 60.33 kg

DRUGS (11)
  1. SUTENT [Suspect]
     Indication: GASTROINTESTINAL STROMAL TUMOUR
     Route: 065
     Dates: start: 20060331
  2. CARDIZEM [Concomitant]
     Indication: HYPERTENSION
     Route: 065
     Dates: end: 20060401
  3. TRIAMTERENE AND HYDROCHLOROTHIAZIDE [Concomitant]
     Indication: HYPERTENSION
     Route: 065
     Dates: end: 20060401
  4. TOPROL-XL [Concomitant]
     Indication: HYPERTENSION
     Route: 065
     Dates: start: 20060428
  5. NORVASC [Concomitant]
     Indication: HYPERTENSION
     Route: 065
     Dates: start: 20060428
  6. VALSARTAN [Concomitant]
     Indication: HYPERTENSION
     Route: 065
  7. CELECOXIB [Concomitant]
     Indication: ARTHRITIS
     Route: 065
  8. PREMARIN [Concomitant]
     Indication: HORMONE REPLACEMENT THERAPY
     Route: 065
  9. ZOLOFT [Concomitant]
     Indication: DEPRESSION
     Route: 065
  10. SYNTHROID [Concomitant]
     Indication: THYROID DISORDER
     Route: 065
     Dates: start: 20020101
  11. ACIPHEX [Concomitant]
     Indication: DYSPEPSIA

REACTIONS (11)
  - BODY HEIGHT DECREASED [None]
  - DRUG TOXICITY [None]
  - DYSPEPSIA [None]
  - FEELING ABNORMAL [None]
  - FLATULENCE [None]
  - HEADACHE [None]
  - HYPERKERATOSIS [None]
  - MUSCLE SPASMS [None]
  - PAIN IN EXTREMITY [None]
  - SKIN PAPILLOMA [None]
  - SOMNOLENCE [None]
